FAERS Safety Report 5532108-1 (Version None)
Quarter: 2007Q4

REPORT INFORMATION
  Report Type: 
  Country: None (occurrence: None)
  Receive Date: 20071203
  Receipt Date: 20071129
  Transmission Date: 20080405
  Serious: Yes (Other)
  Sender: FDA-Public Use
  Company Number: A0695286A

PATIENT
  Age: 53 Year
  Sex: Female

DRUGS (5)
  1. ALLI [Suspect]
     Indication: WEIGHT DECREASED
     Route: 048
  2. LEVOXYL [Concomitant]
  3. ALDACTONE [Concomitant]
  4. CALCIUM SUPPLEMENT [Concomitant]
  5. CARAFATE [Concomitant]

REACTIONS (6)
  - BLISTER [None]
  - BLOOD CHOLESTEROL INCREASED [None]
  - BLOOD TRIGLYCERIDES INCREASED [None]
  - BUNION [None]
  - CHEST PAIN [None]
  - PAIN IN EXTREMITY [None]
